FAERS Safety Report 4504755-7 (Version None)
Quarter: 2004Q4

REPORT INFORMATION
  Report Type: 
  Country: None (occurrence: None)
  Receive Date: 20041118
  Receipt Date: 20041109
  Transmission Date: 20050328
  Serious: Yes (Hospitalization, Disabling)
  Sender: FDA-Public Use
  Company Number: CA-MERCK-0411CAN00139

PATIENT
  Age: 47 Year
  Sex: Female

DRUGS (2)
  1. VIOXX [Suspect]
     Indication: RHEUMATOID ARTHRITIS
     Route: 048
     Dates: start: 20020901
  2. VIOXX [Suspect]
     Route: 048
     Dates: start: 20020901

REACTIONS (5)
  - ANXIETY [None]
  - ARRHYTHMIA [None]
  - DEEP VEIN THROMBOSIS [None]
  - DEPRESSION [None]
  - MOOD SWINGS [None]
